FAERS Safety Report 8138852-4 (Version None)
Quarter: 2012Q1

REPORT INFORMATION
  Report Type: 
  Country: None (occurrence: None)
  Receive Date: 20120215
  Receipt Date: 20120208
  Transmission Date: 20120608
  Serious: Yes (Other)
  Sender: FDA-Public Use
  Company Number: JP-ROCHE-786405

PATIENT
  Age: 74 Year
  Sex: Female

DRUGS (6)
  1. FLUOROURACIL [Concomitant]
     Route: 041
  2. FLUOROURACIL [Concomitant]
     Route: 040
  3. IRINOTECAN HCL [Concomitant]
     Route: 041
  4. OXALIPLATIN [Concomitant]
     Route: 041
  5. AVASTIN [Suspect]
     Indication: COLON CANCER METASTATIC
     Route: 041
  6. LEVOLEUCOVORIN CALCIUM [Concomitant]
     Route: 041

REACTIONS (3)
  - MALAISE [None]
  - LIVER DISORDER [None]
  - JAUNDICE [None]
